FAERS Safety Report 7531424-1 (Version None)
Quarter: 2011Q2

REPORT INFORMATION
  Report Type: 
  Country: None (occurrence: None)
  Receive Date: 20110608
  Receipt Date: 20110603
  Transmission Date: 20111010
  Serious: Yes (Death, Hospitalization, Other)
  Sender: FDA-Public Use
  Company Number: US-AMGEN-USASP2011002070

PATIENT
  Age: 85 Year
  Sex: Male
  Weight: 78.912 kg

DRUGS (17)
  1. LIDOCAINE HCL VISCOUS [Concomitant]
  2. MILK OF MAGNESIUM [Concomitant]
  3. MORPHINE [Concomitant]
  4. SALIVA SUBSTITUTE [Concomitant]
  5. SCOPOLAMINE [Concomitant]
  6. NYSTATIN [Concomitant]
  7. NPLATE [Suspect]
     Indication: IDIOPATHIC THROMBOCYTOPENIC PURPURA
     Dosage: 0.5 A?G/KG, UNK
     Dates: start: 20100602, end: 20101214
  8. BISACODYL [Concomitant]
  9. LORAZEPAM [Concomitant]
  10. MIRALAX [Concomitant]
  11. SODIUM CHLORIDE [Concomitant]
  12. ACETAMINOPHEN [Concomitant]
  13. MYLANTA                            /00036701/ [Concomitant]
  14. ZOFRAN [Concomitant]
  15. DUONEB [Concomitant]
  16. HALDOL [Concomitant]
  17. TRAVATAN [Concomitant]

REACTIONS (9)
  - URINARY TRACT INFECTION [None]
  - ASTHENIA [None]
  - CONSTIPATION [None]
  - CARDIAC DISORDER [None]
  - ATRIAL FIBRILLATION [None]
  - CARDIAC ARREST [None]
  - PLEURAL EFFUSION [None]
  - ELECTROCARDIOGRAM QT PROLONGED [None]
  - STREPTOCOCCAL INFECTION [None]
